FAERS Safety Report 8250881-9 (Version None)
Quarter: 2012Q1

REPORT INFORMATION
  Report Type: 
  Country: None (occurrence: None)
  Receive Date: 20120328
  Receipt Date: 20120317
  Transmission Date: 20120608
  Serious: Yes (Hospitalization, Other)
  Sender: FDA-Public Use
  Company Number: 2012AP000750

PATIENT
  Age: 23 Year
  Sex: Male

DRUGS (3)
  1. ALPRAZOLAM [Suspect]
     Dosage: 42 TAB,
  2. ACETAMINOPHEN AND HYDROCODONE BITARTRATE [Suspect]
  3. RISPERIDONE [Suspect]

REACTIONS (4)
  - ATRIOVENTRICULAR BLOCK SECOND DEGREE [None]
  - MULTIPLE DRUG OVERDOSE [None]
  - SINUS BRADYCARDIA [None]
  - SELF-MEDICATION [None]
